FAERS Safety Report 4365296-3 (Version None)
Quarter: 2004Q2

REPORT INFORMATION
  Report Type: 
  Country: None (occurrence: None)
  Receive Date: 20040525
  Receipt Date: 20040209
  Transmission Date: 20050107
  Serious: No
  Sender: FDA-Public Use
  Company Number: PHEH2004US01712

PATIENT
  Age: 57 Year
  Sex: Female

DRUGS (11)
  1. ZELNORM [Suspect]
     Indication: CONSTIPATION
     Dosage: 6 MG, BID
     Dates: start: 20031111
  2. MIACALCIN [Concomitant]
  3. PROMETRIUM [Concomitant]
  4. ALORA [Concomitant]
  5. SYNTHROID [Concomitant]
  6. XANAX [Concomitant]
  7. BACTRIM [Concomitant]
  8. IMURAN [Concomitant]
  9. VIOXX [Concomitant]
  10. PROTONIX [Concomitant]
  11. MILK OF MAGNESIA TAB [Concomitant]

REACTIONS (4)
  - ABDOMINAL PAIN [None]
  - NAUSEA [None]
  - REGURGITATION OF FOOD [None]
  - STOMACH DISCOMFORT [None]
